FAERS Safety Report 7041267-3 (Version None)
Quarter: 2010Q4

REPORT INFORMATION
  Report Type: 
  Country: None (occurrence: None)
  Receive Date: 20101013
  Receipt Date: 20101006
  Transmission Date: 20110411
  Serious: Yes (Death, Hospitalization, Other)
  Sender: FDA-Public Use
  Company Number: US-AMGEN-KDC417129

PATIENT
  Weight: 0.59 kg

DRUGS (4)
  1. ENBREL [Suspect]
     Route: 064
     Dates: start: 20091010, end: 20100301
  2. TYLENOL [Concomitant]
     Route: 064
     Dates: start: 20091010, end: 20100227
  3. PRENATAL VITAMINS [Concomitant]
     Route: 064
     Dates: start: 20091210, end: 20100329
  4. INFLUENZA A (H1N1) MONOVALENT VACCINE [Concomitant]
     Route: 064
     Dates: start: 20091230, end: 20091230

REACTIONS (14)
  - ABDOMINAL DISTENSION [None]
  - ATRIAL SEPTAL DEFECT [None]
  - DEATH [None]
  - HYPONATRAEMIA [None]
  - JAUNDICE NEONATAL [None]
  - METABOLIC ACIDOSIS [None]
  - NECROTISING COLITIS [None]
  - NEONATAL RESPIRATORY DISTRESS SYNDROME [None]
  - PATENT DUCTUS ARTERIOSUS [None]
  - PERIVENTRICULAR LEUKOMALACIA [None]
  - PNEUMATOSIS [None]
  - PREMATURE BABY [None]
  - SEPSIS NEONATAL [None]
  - THROMBOCYTOPENIA [None]
